FAERS Safety Report 11661301 (Version 1)
Quarter: 2015Q4

REPORT INFORMATION
  Report Type: Spontaneous
  Country: US (occurrence: US)
  Receive Date: 20151026
  Receipt Date: 20151026
  Transmission Date: 20160304
  Serious: No
  Sender: FDA-Public Use
  Company Number: US-JUBILANT CADISTA PHARMACEUTICALS-2014JUB00160

PATIENT
  Age: 5 Day
  Sex: Female

DRUGS (3)
  1. PREDNISONE. [Suspect]
     Active Substance: PREDNISONE
     Dosage: 60 MG, 1X/DAY
     Dates: start: 201409, end: 201409
  2. PREDNISONE. [Suspect]
     Active Substance: PREDNISONE
     Dosage: 40 MG, 1X/DAY
     Route: 048
     Dates: start: 20140827, end: 201409
  3. PREDNISONE. [Suspect]
     Active Substance: PREDNISONE
     Dosage: 40 MG, 1X/DAY
     Dates: start: 201409

REACTIONS (3)
  - Weight gain poor [Unknown]
  - Hypersomnia [Unknown]
  - Exposure during breast feeding [Unknown]

NARRATIVE: CASE EVENT DATE: 201409
